FAERS Safety Report 8846486 (Version 1)
Quarter: 2012Q4

REPORT INFORMATION
  Report Type: 
  Country: JP (occurrence: JP)
  Receive Date: 20121017
  Receipt Date: 20121017
  Transmission Date: 20130627
  Serious: Yes (Hospitalization)
  Sender: FDA-Public Use
  Company Number: JP-MYLANLABS-2012S1021013

PATIENT
  Age: 46 Year
  Sex: Female

DRUGS (5)
  1. NORTRIPTYLINE [Suspect]
     Indication: OVERDOSE
     Route: 065
  2. PAROXETINE [Interacting]
     Indication: OVERDOSE
     Route: 065
  3. MIRTAZAPINE [Suspect]
     Indication: OVERDOSE
     Route: 065
  4. ESTAZOLAM [Suspect]
     Indication: OVERDOSE
     Route: 065
  5. BROMAZEPAM [Suspect]
     Indication: OVERDOSE
     Route: 065

REACTIONS (7)
  - Overdose [Recovering/Resolving]
  - Depressed level of consciousness [Recovering/Resolving]
  - Hypotension [Unknown]
  - Electrocardiogram QRS complex prolonged [Recovered/Resolved]
  - Bundle branch block left [Recovered/Resolved]
  - Convulsion [Unknown]
  - Drug interaction [Recovering/Resolving]
